FAERS Safety Report 24105986 (Version 1)
Quarter: 2024Q3

REPORT INFORMATION
  Report Type: Spontaneous
  Country: IT (occurrence: None)
  Receive Date: 20240717
  Receipt Date: 20240717
  Transmission Date: 20241017
  Serious: Yes (Hospitalization)
  Sender: ASTRAZENECA
  Company Number: 2024A161689

PATIENT
  Age: 50 Year
  Sex: Female

DRUGS (10)
  1. QUETIAPINE [Suspect]
     Active Substance: QUETIAPINE
     Indication: Drug abuse
     Dosage: 1 BLISTER
     Dates: start: 20240614, end: 20240614
  2. BISOPROLOL FUMARATE [Suspect]
     Active Substance: BISOPROLOL FUMARATE
     Indication: Drug abuse
     Dates: start: 20240614, end: 20240614
  3. ASPIRIN [Suspect]
     Active Substance: ASPIRIN
     Indication: Drug abuse
     Dosage: 29 TABLET
     Dates: start: 20240614, end: 20240614
  4. NALOXONE HYDROCHLORIDE\OXYCODONE HYDROCHLORIDE [Suspect]
     Active Substance: NALOXONE HYDROCHLORIDE\OXYCODONE HYDROCHLORIDE
     Indication: Drug abuse
     Dosage: 5/2.5 MG / 4 TABLET
     Dates: start: 20240614, end: 20240614
  5. AMLODIPINE [Suspect]
     Active Substance: AMLODIPINE BESYLATE
     Indication: Drug abuse
     Dosage: 5MG /16 TABLET
     Dates: start: 20240614, end: 20240614
  6. HALCION [Suspect]
     Active Substance: TRIAZOLAM
     Indication: Drug abuse
     Dosage: 20 TABLETS OF 0.25MG
     Dates: start: 20240614, end: 20240614
  7. PANTOPRAZOLE [Suspect]
     Active Substance: PANTOPRAZOLE
  8. CIPRALEX [Suspect]
     Active Substance: ESCITALOPRAM OXALATE
  9. VALPROATE SODIUM [Suspect]
     Active Substance: VALPROATE SODIUM
  10. TAVOR (LORAZEPAM) [Suspect]
     Active Substance: LORAZEPAM

REACTIONS (3)
  - Drug abuse [Unknown]
  - Hypotension [Unknown]
  - Sopor [Unknown]

NARRATIVE: CASE EVENT DATE: 20240614
